FAERS Safety Report 6613659-5 (Version None)
Quarter: 2010Q1

REPORT INFORMATION
  Report Type: 
  Country: None (occurrence: None)
  Receive Date: 20100304
  Receipt Date: 20100226
  Transmission Date: 20100710
  Serious: Yes (Other)
  Sender: FDA-Public Use
  Company Number: CA-ABBOTT-10P-028-0629044-00

PATIENT
  Sex: Male

DRUGS (5)
  1. LIPIDIL EZ [Suspect]
     Indication: BLOOD CHOLESTEROL
     Dates: start: 20091126
  2. LIPITOR [Concomitant]
     Indication: BLOOD CHOLESTEROL INCREASED
  3. UNSPECIFIED MEDICATION [Concomitant]
     Indication: BLOOD PRESSURE
  4. INSULIN [Concomitant]
     Indication: BLOOD GLUCOSE INCREASED
     Route: 042
  5. METFORMIN HYDROCHLORIDE [Concomitant]
     Indication: BLOOD GLUCOSE INCREASED

REACTIONS (1)
  - RENAL FAILURE [None]
